FAERS Safety Report 7040042-3 (Version None)
Quarter: 2010Q4

REPORT INFORMATION
  Report Type: 
  Country: None (occurrence: None)
  Receive Date: 20101012
  Receipt Date: 20101004
  Transmission Date: 20110411
  Serious: Yes (Hospitalization, Other)
  Sender: FDA-Public Use
  Company Number: US-AMGEN-KDL443656

PATIENT
  Sex: Female
  Weight: 59.9 kg

DRUGS (16)
  1. PROCRIT [Suspect]
     Indication: PRODUCT USED FOR UNKNOWN INDICATION
     Route: 058
     Dates: start: 20090101, end: 20100501
  2. LORATADINE [Concomitant]
     Route: 048
  3. ALBUTEROL INHALER [Concomitant]
     Route: 055
  4. AMBIEN [Concomitant]
     Route: 048
  5. ATROVENT [Concomitant]
     Route: 055
  6. CELEXA [Concomitant]
     Route: 048
  7. FLECTOR [Concomitant]
     Route: 062
  8. LEVOTHYROXINE [Concomitant]
     Route: 048
  9. MIRALAX [Concomitant]
     Route: 048
  10. PERCOCET [Concomitant]
     Route: 048
  11. TROSPIUM CHLORIDE [Concomitant]
     Route: 048
  12. XANAX [Concomitant]
     Route: 048
  13. ZYRTEC [Concomitant]
     Route: 048
  14. SORBITOL [Concomitant]
     Route: 048
  15. FENTANYL [Concomitant]
     Route: 062
  16. CLOTRIMAZOLE [Concomitant]
     Route: 061

REACTIONS (6)
  - INJECTION SITE DISCOLOURATION [None]
  - INJECTION SITE ERYTHEMA [None]
  - INJECTION SITE PRURITUS [None]
  - INJECTION SITE SCAR [None]
  - LUNG NEOPLASM [None]
  - PNEUMONIA [None]
